FAERS Safety Report 4674664-1 (Version None)
Quarter: 2005Q2

REPORT INFORMATION
  Report Type: 
  Country: None (occurrence: None)
  Receive Date: 20050526
  Receipt Date: 20050324
  Transmission Date: 20051028
  Serious: Yes (Other)
  Sender: FDA-Public Use
  Company Number: SER/8/3580

PATIENT
  Sex: Female

DRUGS (4)
  1. PAROXETINE [Suspect]
  2. AMITRIPTYLINE [Concomitant]
  3. FLUOXETINE [Concomitant]
     Indication: ANXIETY
  4. HRT [Concomitant]

REACTIONS (8)
  - ANXIETY [None]
  - APATHY [None]
  - COMPLETED SUICIDE [None]
  - DECREASED APPETITE [None]
  - FATIGUE [None]
  - MEMORY IMPAIRMENT [None]
  - PANIC ATTACK [None]
  - SUICIDE ATTEMPT [None]
